FAERS Safety Report 5315681-8 (Version None)
Quarter: 2007Q2

REPORT INFORMATION
  Report Type: 
  Country: None (occurrence: None)
  Receive Date: 20070503
  Receipt Date: 20070423
  Transmission Date: 20071010
  Serious: Yes (Hospitalization)
  Sender: FDA-Public Use
  Company Number: JP-MERCK-0704USA05686

PATIENT
  Age: 71 Year
  Sex: Male

DRUGS (5)
  1. HYZAAR [Suspect]
     Indication: HYPERTENSION
     Route: 048
     Dates: start: 20070208, end: 20070418
  2. FUROSEMIDE [Concomitant]
     Route: 048
  3. EPOGEN [Concomitant]
     Route: 042
  4. ALLOPURINOL [Concomitant]
     Route: 065
  5. CILNIDIPINE [Concomitant]
     Route: 048

REACTIONS (2)
  - BLOOD CREATINE PHOSPHOKINASE INCREASED [None]
  - OEDEMA [None]
